FAERS Safety Report 7015860 (Version 9)
Quarter: 2013Q2

REPORT INFORMATION
  Report Type: Spontaneous
  Country: US (occurrence: US)
  Receive Date: 20090610
  Receipt Date: 20130404
  Transmission Date: 20140414
  Serious: Yes (Hospitalization, Other)
  Sender: FDA-Public Use
  Company Number: US-BAYER-200922409NA

PATIENT
  Age: 51 Year
  Sex: Male
  Weight: 88.44 kg

DRUGS (24)
  1. TRASYLOL [Suspect]
     Indication: CORONARY ARTERY BYPASS
     Dosage: 100 CC THEN 25 CC/HOUR
     Route: 042
     Dates: start: 20030709, end: 20030709
  2. AVAPRO [Concomitant]
     Dosage: 300 MG, QD
     Route: 048
     Dates: start: 2003
  3. LIPITOR [Concomitant]
     Dosage: 40 MG, QD
     Route: 048
     Dates: start: 2003
  4. TOPROL [Concomitant]
     Dosage: 100 MG, QD
     Route: 048
     Dates: start: 2003
  5. AVANDIA [Concomitant]
     Dosage: 80 MG, QD
     Route: 048
     Dates: start: 2003
  6. PLAVIX [Concomitant]
     Dosage: 75 MG, QD
     Route: 048
     Dates: start: 2003
  7. ZETIA [Concomitant]
     Dosage: 10 MG, QD
     Route: 048
     Dates: start: 2003
  8. ISOSORBIDE MONONITRATE [Concomitant]
     Dosage: 100 MG, UNK
     Route: 048
     Dates: start: 2003
  9. NITROQUICK [Concomitant]
     Dosage: 0.4 MG AS NEEDED
     Route: 048
     Dates: start: 2003
  10. TOPROL XL [Concomitant]
     Dosage: 100 MG, QD
  11. ACETYLSALICYLIC ACID({=100 MG) [Concomitant]
     Dosage: 81 MG, QD
  12. TRICOR [Concomitant]
     Dosage: 160 MG, QD
  13. VERSED [Concomitant]
     Dosage: UNK
     Dates: start: 20030709
  14. VASOPRESSIN [Concomitant]
     Dosage: UNK
     Dates: start: 20030709
  15. HEPARIN [Concomitant]
     Dosage: UNK
     Dates: start: 20030709
  16. INSULIN [Concomitant]
     Dosage: UNK
     Dates: start: 20030709
  17. LIDOCAINE [Concomitant]
     Dosage: UNK
     Dates: start: 20030709
  18. PLASMALYTE [GLUCOSE,POTASSIUM CHLORIDE] [Concomitant]
     Dosage: UNK
     Dates: start: 20030709
  19. PLASMA, FRESH FROZEN [Concomitant]
     Dosage: 6 U, UNK
     Dates: start: 20030709
  20. PACKED RED BLOOD CELLS [Concomitant]
     Dosage: 1 U, UNK
     Dates: start: 20030709
  21. PLATELETS, HUMAN BLOOD [Concomitant]
     Dosage: 1 U, UNK
     Dates: start: 20030709
  22. LASIX [Concomitant]
     Dosage: UNK
     Route: 042
     Dates: start: 20030712
  23. DOPAMINE [Concomitant]
     Dosage: UNK
     Route: 042
     Dates: start: 20030712
  24. PROTAMINE [Concomitant]

REACTIONS (14)
  - Multi-organ failure [Unknown]
  - Renal failure [Recovered/Resolved]
  - Renal impairment [Unknown]
  - Renal injury [Unknown]
  - Emotional distress [Unknown]
  - Stress [Unknown]
  - Anxiety [Unknown]
  - Unevaluable event [Unknown]
  - Fear [Unknown]
  - Pain [Unknown]
  - Unevaluable event [Unknown]
  - Anxiety [Unknown]
  - Anhedonia [Unknown]
  - Injury [Unknown]
